FAERS Safety Report 16571802 (Version 2)
Quarter: 2019Q3

REPORT INFORMATION
  Report Type: Spontaneous
  Country: US (occurrence: US)
  Receive Date: 20190715
  Receipt Date: 20190807
  Transmission Date: 20191004
  Serious: No
  Sender: FDA-Public Use
  Company Number: US-PFIZER INC-2019299047

PATIENT
  Age: 77 Year
  Sex: Female
  Weight: 54.43 kg

DRUGS (1)
  1. LEVOXYL [Suspect]
     Active Substance: LEVOTHYROXINE SODIUM
     Indication: HYPOTHYROIDISM
     Dosage: 37.5 UG, ONCE DAILY (THREE-FOURTH TABLET)
     Route: 048
     Dates: start: 2017

REACTIONS (4)
  - Malaise [Recovering/Resolving]
  - Poor quality product administered [Unknown]
  - Product physical issue [Unknown]
  - Heart rate increased [Recovered/Resolved]

NARRATIVE: CASE EVENT DATE: 20190709
